FAERS Safety Report 5038185-9 (Version None)
Quarter: 2006Q2

REPORT INFORMATION
  Report Type: 
  Country: None (occurrence: None)
  Receive Date: 20060623
  Receipt Date: 20060613
  Transmission Date: 20061013
  Serious: Yes (Hospitalization)
  Sender: FDA-Public Use
  Company Number: 8009596

PATIENT
  Age: 7 Year
  Sex: Female
  Weight: 21.8 kg

DRUGS (2)
  1. KEPPRA [Suspect]
     Indication: CONVULSION
     Dosage: 50 MG /D PO
     Route: 048
     Dates: start: 20041201
  2. KEPPRA [Suspect]
     Indication: CONVULSION
     Dosage: 500 MG 2 /D PO
     Route: 048
     Dates: start: 20041201

REACTIONS (1)
  - TACHYCARDIA [None]
